FAERS Safety Report 8598961-2 (Version None)
Quarter: 2012Q3

REPORT INFORMATION
  Report Type: 
  Country: None (occurrence: None)
  Receive Date: 20120806
  Receipt Date: 20120806
  Transmission Date: 20120928
  Serious: Yes (Hospitalization, Other)
  Sender: FDA-Public Use
  Company Number: None

PATIENT
  Sex: Female

DRUGS (6)
  1. ADOVAN [Concomitant]
  2. ZOLOFT [Concomitant]
  3. XANIX [Concomitant]
  4. PRONALAZEPAN [Concomitant]
  5. LUPRON DEPOT [Suspect]
     Indication: OVARIAN CYST
     Dosage: ONCE A MONTH IM
     Route: 030
  6. LUPRON DEPOT [Suspect]
     Indication: ENDOMETRIOSIS
     Dosage: ONCE A MONTH IM
     Route: 030

REACTIONS (15)
  - DEHYDRATION [None]
  - HYPERTENSION [None]
  - PALPITATIONS [None]
  - DIZZINESS [None]
  - CONVULSION [None]
  - APHAGIA [None]
  - PALLOR [None]
  - ALOPECIA [None]
  - DYSPNOEA [None]
  - WEIGHT DECREASED [None]
  - VOMITING [None]
  - RETCHING [None]
  - LETHARGY [None]
  - MEMORY IMPAIRMENT [None]
  - DIARRHOEA [None]
